FAERS Safety Report 4738148-4 (Version None)
Quarter: 2005Q3

REPORT INFORMATION
  Report Type: 
  Country: None (occurrence: None)
  Receive Date: 20050802
  Receipt Date: 20050715
  Transmission Date: 20060218
  Serious: Yes (Other)
  Sender: FDA-Public Use
  Company Number: B0388220A

PATIENT
  Age: 36 Year
  Sex: Male

DRUGS (5)
  1. LITHIUM CARBONATE [Suspect]
  2. ELECTROCONVULSIVE THERAPY (FORMULATION UNKNOWN) (ELECTROCONVULSIVE THE [Suspect]
  3. TRAZODONE [Concomitant]
  4. LORAZEPAM [Concomitant]
  5. THIOPENTONE SODIUM [Concomitant]

REACTIONS (5)
  - AUTOMATISM [None]
  - COMPLEX PARTIAL SEIZURES [None]
  - CONVULSION [None]
  - DRUG INTERACTION [None]
  - MAJOR DEPRESSION [None]
